FAERS Safety Report 6885822-X (Version None)
Quarter: 2010Q3

REPORT INFORMATION
  Report Type: 
  Country: None (occurrence: None)
  Receive Date: 20100729
  Receipt Date: 20080804
  Transmission Date: 20110219
  Serious: Yes (Other)
  Sender: FDA-Public Use
  Company Number: US-PFIZER INC-2008037215

PATIENT
  Age: 23 Year
  Sex: Female
  Weight: 68 kg

DRUGS (1)
  1. CELEBREX [Suspect]
     Indication: ARTHRALGIA

REACTIONS (6)
  - HYPOAESTHESIA FACIAL [None]
  - PRURITUS [None]
  - RASH GENERALISED [None]
  - SWELLING [None]
  - THROAT TIGHTNESS [None]
  - WHEEZING [None]
